FAERS Safety Report 23156077 (Version 1)
Quarter: 2023Q4

REPORT INFORMATION
  Report Type: Report from Study
  Country: EG (occurrence: EG)
  Receive Date: 20231107
  Receipt Date: 20231107
  Transmission Date: 20240110
  Serious: Yes (Other)
  Sender: FDA-Public Use
  Company Number: EG-SANDOZ-SDZ2023EG051108

PATIENT
  Age: 69 Year
  Sex: Female

DRUGS (4)
  1. ERELZI [Suspect]
     Active Substance: ETANERCEPT-SZZS
     Indication: Rheumatoid arthritis
     Dosage: 50 MG, QW
     Route: 058
     Dates: start: 20231028
  2. LEFLUNOMIDE [Concomitant]
     Active Substance: LEFLUNOMIDE
     Indication: Rheumatoid arthritis
     Dosage: UNK, QD
     Route: 048
  3. BON-ONE [Concomitant]
     Indication: Rheumatoid arthritis
     Dosage: UNK, QD (ONCE TABLET ONCE DAILY AFTER DINNER)
     Route: 048
     Dates: start: 20231028
  4. Epicopred [Concomitant]
     Indication: Rheumatoid arthritis
     Dosage: 1/2 TABLET ONCE EVERY OTHER DAY
     Route: 048
     Dates: start: 20231028

REACTIONS (1)
  - Blood glucose decreased [Unknown]

NARRATIVE: CASE EVENT DATE: 20231029
